FAERS Safety Report 9403617 (Version 1)
Quarter: 2013Q3

REPORT INFORMATION
  Report Type: Spontaneous
  Country: ES (occurrence: ES)
  Receive Date: 20130717
  Receipt Date: 20130717
  Transmission Date: 20140515
  Serious: Yes (Other)
  Sender: FDA-Public Use
  Company Number: ES-AMGEN-ESPSP2013048342

PATIENT
  Age: 30 Year
  Sex: Female

DRUGS (1)
  1. XGEVA [Suspect]
     Indication: BONE GIANT CELL TUMOUR

REACTIONS (1)
  - Interstitial lung disease [Not Recovered/Not Resolved]
